FAERS Safety Report 4678674-X (Version None)
Quarter: 2005Q2

REPORT INFORMATION
  Report Type: 
  Country: None (occurrence: None)
  Receive Date: 20050527
  Receipt Date: 20050517
  Transmission Date: 20051028
  Serious: Yes (Hospitalization, Other)
  Sender: FDA-Public Use
  Company Number: 2005073578

PATIENT
  Age: 80 Year
  Sex: Female
  Weight: 64.4108 kg

DRUGS (15)
  1. TIKOSYN [Suspect]
     Indication: ATRIAL FIBRILLATION
     Dosage: 0.5 MG (0.25 MG, 2 IN 1 D)
     Dates: start: 20050424
  2. NITROSTAT [Suspect]
     Indication: CHEST DISCOMFORT
     Dosage: (0.4 MG), ORAL
     Route: 048
     Dates: start: 20050503, end: 20050504
  3. NITROSTAT [Suspect]
     Indication: CHEST PAIN
     Dosage: (0.4 MG), ORAL
     Route: 048
     Dates: start: 20050503, end: 20050504
  4. DILTIAZEM [Concomitant]
  5. ACEBUTOLOL [Concomitant]
  6. SOTALOL HCL [Concomitant]
  7. COREG [Concomitant]
  8. CRESTOR [Concomitant]
  9. DIGOXIN [Concomitant]
  10. COZAAR [Concomitant]
  11. FUROSEMIDE [Concomitant]
  12. SYNTHROID [Concomitant]
  13. COUMADIN [Concomitant]
  14. PRILOSEC [Concomitant]
  15. POTASSIUM ACETATE [Concomitant]

REACTIONS (11)
  - BLOOD PRESSURE DECREASED [None]
  - BLOOD PRESSURE SYSTOLIC INCREASED [None]
  - BONE PAIN [None]
  - BREAST PAIN [None]
  - DRUG INEFFECTIVE [None]
  - HEADACHE [None]
  - HEART RATE INCREASED [None]
  - MYOCARDIAL INFARCTION [None]
  - PHARMACEUTICAL PRODUCT COMPLAINT [None]
  - PROTHROMBIN TIME ABNORMAL [None]
  - THROAT IRRITATION [None]
